FAERS Safety Report 8236509-2 (Version None)
Quarter: 2012Q1

REPORT INFORMATION
  Report Type: 
  Country: None (occurrence: None)
  Receive Date: 20120327
  Receipt Date: 20120319
  Transmission Date: 20120608
  Serious: Yes (Other)
  Sender: FDA-Public Use
  Company Number: ES-ASTELLAS-2012EU002251

PATIENT
  Age: 65 Year
  Sex: Female

DRUGS (2)
  1. VESICARE [Suspect]
     Indication: HYPERTONIC BLADDER
     Dosage: UNK
     Route: 065
  2. VESICARE [Suspect]
     Indication: MICTURITION URGENCY

REACTIONS (2)
  - OCULAR DISCOMFORT [None]
  - GLAUCOMA [None]
